FAERS Safety Report 12505302 (Version 1)
Quarter: 2016Q2

REPORT INFORMATION
  Report Type: Spontaneous
  Country: US (occurrence: US)
  Receive Date: 20160628
  Receipt Date: 20160628
  Transmission Date: 20160815
  Serious: Yes (Other)
  Sender: FDA-Public Use
  Company Number: US-LUNDBECK-DKLU2015521

PATIENT
  Sex: Male

DRUGS (2)
  1. NORTHERA [Suspect]
     Active Substance: DROXIDOPA
     Route: 065
  2. NORTHERA [Suspect]
     Active Substance: DROXIDOPA
     Indication: PRODUCT USED FOR UNKNOWN INDICATION
     Route: 065

REACTIONS (13)
  - Arthralgia [Unknown]
  - Cough [Unknown]
  - Pollakiuria [Unknown]
  - Chest discomfort [Unknown]
  - Vision blurred [Unknown]
  - Dyspnoea at rest [Unknown]
  - Hyperhidrosis [Unknown]
  - Chest pain [Unknown]
  - Sleep disorder [Unknown]
  - Hypoacusis [Unknown]
  - Nocturia [Unknown]
  - Dizziness [Unknown]
  - Syncope [Unknown]
